FAERS Safety Report 6236894-7 (Version None)
Quarter: 2009Q2

REPORT INFORMATION
  Report Type: 
  Country: None (occurrence: None)
  Receive Date: 20090619
  Receipt Date: 20090609
  Transmission Date: 20091009
  Serious: Yes (Hospitalization)
  Sender: FDA-Public Use
  Company Number: FR-PFIZER INC-2009224567

PATIENT
  Age: 60 Year

DRUGS (4)
  1. SOLU-MEDROL [Suspect]
     Indication: PREMEDICATION
     Dosage: 40 MG, 1X/DAY
     Route: 042
     Dates: start: 20090324, end: 20090324
  2. CAELYX [Suspect]
     Indication: OVARIAN CANCER
     Dosage: 65 MG, 1X/DAY
     Route: 042
     Dates: start: 20090324, end: 20090324
  3. PLITICAN [Suspect]
     Indication: PREMEDICATION
     Dosage: 50 MG, 1X/DAY
     Route: 042
     Dates: start: 20090324, end: 20090324
  4. ONDANSETRON HCL [Suspect]
     Indication: PREMEDICATION
     Dosage: 8 MG, 1X/DAY
     Route: 042
     Dates: start: 20090324, end: 20090324

REACTIONS (3)
  - DYSPEPSIA [None]
  - PRURITUS [None]
  - SKIN HYPERPIGMENTATION [None]
